FAERS Safety Report 9896537 (Version 1)
Quarter: 2014Q1

REPORT INFORMATION
  Report Type: Spontaneous
  Country: US (occurrence: US)
  Receive Date: 20140213
  Receipt Date: 20140213
  Transmission Date: 20141002
  Serious: No
  Sender: FDA-Public Use
  Company Number: US-BRISTOL-MYERS SQUIBB COMPANY-18857839

PATIENT
  Age: 60 Year
  Sex: Female
  Weight: 65.3 kg

DRUGS (7)
  1. ORENCIA FOR INJ [Suspect]
     Dosage: 1DF=125MG/1ML
     Route: 058
  2. PREMARIN [Concomitant]
     Dosage: TAB
  3. TRAMADOL HCL [Concomitant]
     Dosage: TRAMADOL HCL TAB 50MG
  4. TRAZODONE HCL TABS 50 MG [Concomitant]
  5. CYMBALTA [Concomitant]
     Dosage: CYMBALTA CAP 20MG
  6. FLEXERIL [Concomitant]
     Dosage: FLEXERIL TAB 10MG
  7. FISH OIL [Concomitant]
     Dosage: CAP

REACTIONS (1)
  - Headache [Unknown]
